FAERS Safety Report 6245140-X (Version None)
Quarter: 2009Q2

REPORT INFORMATION
  Report Type: 
  Country: None (occurrence: None)
  Receive Date: 20090625
  Receipt Date: 20090613
  Transmission Date: 20091009
  Serious: Yes (Hospitalization, Other)
  Sender: FDA-Public Use
  Company Number: US-ELI_LILLY_AND_COMPANY-US200906003408

PATIENT
  Age: 78 Year
  Sex: Female

DRUGS (29)
  1. CYMBALTA [Suspect]
     Indication: DEPRESSION
     Dosage: 60 MG, UNK
     Dates: start: 20060101
  2. CYMBALTA [Suspect]
     Dosage: 60 MG, UNK
     Dates: start: 20090610
  3. CYMBALTA [Suspect]
     Dosage: 30 MG, DAILY (1/D)
  4. CENTRUM SILVER [Concomitant]
  5. VITAMIN E [Concomitant]
  6. NEXIUM [Concomitant]
     Dosage: 40 MG, DAILY (1/D)
  7. LIPITOR [Concomitant]
     Dosage: 20 MG, DAILY (1/D)
  8. MICARDIS [Concomitant]
     Dosage: 40 MG, DAILY (1/D)
  9. LASIX [Concomitant]
     Dosage: 20 MG, 2/D
  10. SYNTHROID [Concomitant]
     Dosage: 75 MG, DAILY (1/D)
  11. SYNTHROID [Concomitant]
     Dosage: 75 MG, DAILY (1/D)
     Route: 045
  12. ZETIA [Concomitant]
     Dosage: 10 MG, DAILY (1/D)
  13. LOVAZA [Concomitant]
     Dosage: 1 MG, 2/D
  14. ASPIRIN [Concomitant]
     Dosage: 81 MG, DAILY (1/D)
  15. PREVACID [Concomitant]
     Dosage: 30 MG, DAILY (1/D)
     Route: 045
  16. SENNA-S /01035001/ [Concomitant]
     Dosage: 1 D/F, 2/D
     Route: 045
  17. LOPRESSOR [Concomitant]
     Dosage: 25 MG, DAILY (1/D)
  18. LOPRESSOR [Concomitant]
     Dosage: 50 MG, 2/D
     Route: 045
  19. COZAAR [Concomitant]
     Dosage: 50 D/F, DAILY (1/D)
     Route: 045
  20. VALIUM [Concomitant]
     Dosage: 5 MG, EVERY 6 HRS
     Route: 045
  21. HALOPERIDOL [Concomitant]
     Dosage: 2 MG, EVERY 8 HRS
     Route: 045
  22. HEPARIN [Concomitant]
     Dosage: 5000 U, 2/D
     Route: 058
  23. CEFEPIME [Concomitant]
     Dosage: 1 G, EVERY 8 HRS
     Route: 042
  24. VANCOMYCIN [Concomitant]
     Dosage: 1 G, 2/D
     Route: 042
  25. INSULIN HUMAN [Concomitant]
     Dosage: 1 D/F, AS NEEDED
     Route: 042
  26. NEUTRA-PHOS [Concomitant]
     Dosage: 1 D/F, AS NEEDED
     Route: 045
  27. POTASSIUM CHLORIDE [Concomitant]
     Dosage: 1 D/F, AS NEEDED
     Route: 045
  28. POTASSIUM CHLORIDE [Concomitant]
     Dosage: 1 D/F, AS NEEDED
     Route: 042
  29. MAGNESIUM SULFATE [Concomitant]
     Dosage: 1 D/F, AS NEEDED
     Route: 042

REACTIONS (4)
  - AGITATION [None]
  - DRUG INTERACTION [None]
  - HYPERTENSIVE ENCEPHALOPATHY [None]
  - TRANSIENT ISCHAEMIC ATTACK [None]
